FAERS Safety Report 18738586 (Version 1)
Quarter: 2021Q1

REPORT INFORMATION
  Report Type: Spontaneous
  Country: SE (occurrence: SE)
  Receive Date: 20210114
  Receipt Date: 20210114
  Transmission Date: 20210419
  Serious: Yes (Hospitalization, Other)
  Sender: FDA-Public Use
  Company Number: SE-TEVA-2021-SE-1868310

PATIENT
  Age: 56 Year
  Sex: Male

DRUGS (3)
  1. FLUOROURACIL TEVA [Suspect]
     Active Substance: FLUOROURACIL
     Indication: COLON CANCER
     Dosage: 2 DAYS IN A ROW WITH ONE INJECTION EVERY 2 WEEKS
     Route: 042
     Dates: start: 20201026, end: 20201222
  2. INNOHEP [Concomitant]
     Active Substance: TINZAPARIN SODIUM
     Dosage: 1600 IU (INTERNATIONAL UNIT) DAILY;
     Route: 058
  3. CALCIUMFOLINAT [Suspect]
     Active Substance: LEUCOVORIN CALCIUM
     Indication: COLON CANCER
     Dosage: 2 DAYS IN A ROW WITH ONE INJECTION EVERY 2 WEEKS
     Route: 042
     Dates: start: 20201026, end: 20201222

REACTIONS (2)
  - Cardiac arrest [Not Recovered/Not Resolved]
  - Myocardial infarction [Not Recovered/Not Resolved]

NARRATIVE: CASE EVENT DATE: 20201231
